FAERS Safety Report 9930770 (Version 1)
Quarter: 2014Q1

REPORT INFORMATION
  Report Type: Spontaneous
  Country: US (occurrence: US)
  Receive Date: 20140227
  Receipt Date: 20140227
  Transmission Date: 20141002
  Serious: No
  Sender: FDA-Public Use
  Company Number: US-AMGEN-USASP2014002421

PATIENT
  Age: 37 Year
  Sex: Female
  Weight: 77.09 kg

DRUGS (4)
  1. ENBREL [Suspect]
     Indication: PRODUCT USED FOR UNKNOWN INDICATION
     Dosage: 50 MG, UNK
     Route: 065
  2. METHOTREXATE [Concomitant]
     Dosage: 2.5 MG, UNK
  3. TRAMADOL HCL [Concomitant]
     Dosage: 50 MG, UNK
  4. ONDANSETRON [Concomitant]
     Dosage: 8 MG, UNK

REACTIONS (1)
  - Weight decreased [Unknown]
